FAERS Safety Report 26011858 (Version 1)
Quarter: 2025Q4

REPORT INFORMATION
  Report Type: Spontaneous
  Country: CN (occurrence: CN)
  Receive Date: 20251107
  Receipt Date: 20251107
  Transmission Date: 20260118
  Serious: Yes (Other)
  Sender: PFIZER
  Company Number: CN-PFIZER INC-PV202500129414

PATIENT
  Age: 66 Year
  Sex: Male
  Weight: 54 kg

DRUGS (2)
  1. VFEND [Suspect]
     Active Substance: VORICONAZOLE
     Indication: Mycotic endophthalmitis
     Dosage: 0.2 G, 2X/DAY
     Route: 041
     Dates: start: 20251014, end: 20251022
  2. GLUCOBAY [Concomitant]
     Active Substance: ACARBOSE
     Indication: Blood glucose increased
     Dosage: 50 MG, 3X/DAY
     Route: 048
     Dates: start: 20251015, end: 20251027

REACTIONS (5)
  - Neurotoxicity [Recovered/Resolved]
  - Hallucination [Recovered/Resolved]
  - Disorganised speech [Recovered/Resolved]
  - Oedema peripheral [Recovering/Resolving]
  - Urine output decreased [Unknown]

NARRATIVE: CASE EVENT DATE: 20251015
